FAERS Safety Report 16149938 (Version 1)
Quarter: 2019Q2

REPORT INFORMATION
  Report Type: Spontaneous
  Country: JP (occurrence: JP)
  Receive Date: 20190402
  Receipt Date: 20190402
  Transmission Date: 20190711
  Serious: Yes (Life-Threatening, Hospitalization)
  Sender: FDA-Public Use
  Company Number: JP-ELI_LILLY_AND_COMPANY-JP201904001192

PATIENT
  Age: 41 Year
  Sex: Male
  Weight: 61 kg

DRUGS (4)
  1. ABILIFY [Suspect]
     Active Substance: ARIPIPRAZOLE
     Indication: SCHIZOPHRENIA
     Route: 048
     Dates: start: 20110316, end: 20110316
  2. ZYPREXA [Suspect]
     Active Substance: OLANZAPINE
     Indication: SCHIZOPHRENIA
     Dosage: 10 MG, DAILY
     Route: 048
     Dates: start: 20110314, end: 20110315
  3. FURSULTIAMINE HYDROCHLORIDE [Concomitant]
     Active Substance: FURSULTIAMINE HYDROCHLORIDE
     Indication: PRODUCT USED FOR UNKNOWN INDICATION
     Dosage: 25 MG, UNKNOWN
     Route: 065
     Dates: start: 20110314, end: 20110317
  4. URSODEOXYCHOLIC ACID [Concomitant]
     Active Substance: URSODIOL
     Indication: PRODUCT USED FOR UNKNOWN INDICATION
     Dosage: 100 MG, UNKNOWN
     Route: 065
     Dates: start: 20110315, end: 20110317

REACTIONS (3)
  - Salivary hypersecretion [Recovered/Resolved]
  - Depressed level of consciousness [Recovered/Resolved]
  - Respiratory depression [Recovered/Resolved]

NARRATIVE: CASE EVENT DATE: 20110315
